FAERS Safety Report 4767978-8 (Version None)
Quarter: 2005Q3

REPORT INFORMATION
  Report Type: 
  Country: None (occurrence: None)
  Receive Date: 20050913
  Receipt Date: 20050712
  Transmission Date: 20060218
  Serious: Yes (Hospitalization)
  Sender: FDA-Public Use
  Company Number: DE-MERCK-0507DEU00096

PATIENT
  Age: 57 Year
  Sex: Male
  Weight: 150 kg

DRUGS (4)
  1. PRIMAXIN [Suspect]
     Indication: PYREXIA
     Route: 051
     Dates: start: 20050101, end: 20050101
  2. ENOXAPARIN SODIUM [Concomitant]
     Route: 058
  3. ESOMEPRAZOLE MAGNESIUM [Concomitant]
     Route: 048
  4. LEVOTHYROXINE SODIUM [Concomitant]
     Indication: HYPERTHYROIDISM
     Route: 048

REACTIONS (2)
  - EOSINOPHILIA [None]
  - POLYURIA [None]
